FAERS Safety Report 22288036 (Version 2)
Quarter: 2023Q2

REPORT INFORMATION
  Report Type: Spontaneous
  Country: CN (occurrence: CN)
  Receive Date: 20230505
  Receipt Date: 20230509
  Transmission Date: 20230721
  Serious: Yes (Other)
  Sender: FDA-Public Use
  Company Number: CN-002147023-NVSC2023CN098771

PATIENT
  Age: 72 Year
  Sex: Female
  Weight: 42.5 kg

DRUGS (2)
  1. VORICONAZOLE [Suspect]
     Active Substance: VORICONAZOLE
     Indication: Hypoxic-ischaemic encephalopathy
     Dosage: 0.2 G, BID
     Route: 048
     Dates: start: 20230412, end: 20230413
  2. ITRACONAZOLE [Suspect]
     Active Substance: ITRACONAZOLE
     Indication: Product used for unknown indication
     Dosage: UNK
     Route: 065

REACTIONS (4)
  - Delirium [Recovering/Resolving]
  - Vision blurred [Recovering/Resolving]
  - Disorganised speech [Recovering/Resolving]
  - Product use in unapproved indication [Unknown]

NARRATIVE: CASE EVENT DATE: 20230412
